FAERS Safety Report 19454353 (Version 1)
Quarter: 2021Q2

REPORT INFORMATION
  Report Type: Spontaneous
  Country: FR (occurrence: FR)
  Receive Date: 20210623
  Receipt Date: 20210623
  Transmission Date: 20210717
  Serious: Yes (Hospitalization)
  Sender: FDA-Public Use
  Company Number: FR-TAKEDA-2021TUS039057

PATIENT

DRUGS (1)
  1. VEYVONDI [Suspect]
     Active Substance: VONICOG ALFA
     Indication: PRODUCT USED FOR UNKNOWN INDICATION
     Dosage: UNK
     Route: 050

REACTIONS (2)
  - Hypersensitivity [Unknown]
  - Rash [Unknown]
